FAERS Safety Report 8887493 (Version 1)
Quarter: 2012Q4

REPORT INFORMATION
  Report Type: Spontaneous
  Country: US (occurrence: None)
  Receive Date: 20121101
  Receipt Date: 20121101
  Transmission Date: 20130627
  Serious: Yes (Hospitalization)
  Sender: FDA-Public Use
  Company Number: None

PATIENT
  Age: 33 Year
  Sex: Female
  Weight: 82.7 kg

DRUGS (6)
  1. DILANTIN [Suspect]
     Indication: SEIZURE
     Dosage: 300mg qam po
chronic
     Route: 048
  2. DILANTIN [Suspect]
     Indication: SEIZURE
     Dosage: 200  qpm po
chronic
     Route: 048
  3. ASA [Concomitant]
  4. IBUPROFEN [Concomitant]
  5. BUSPIRONE [Concomitant]
  6. CLARITIN [Concomitant]

REACTIONS (6)
  - Tremor [None]
  - Vision blurred [None]
  - Weight decreased [None]
  - Gait disturbance [None]
  - Drug level increased [None]
  - Toxicity to various agents [None]
